FAERS Safety Report 21896248 (Version 1)
Quarter: 2023Q1

REPORT INFORMATION
  Report Type: Spontaneous
  Country: DE (occurrence: DE)
  Receive Date: 20230123
  Receipt Date: 20230123
  Transmission Date: 20230417
  Serious: No
  Sender: FDA-Public Use
  Company Number: DE-ALKEM LABORATORIES LIMITED-DE-ALKEM-2022-10952

PATIENT
  Age: 21 Year
  Sex: Male
  Weight: 80 kg

DRUGS (4)
  1. FINGOLIMOD [Suspect]
     Active Substance: FINGOLIMOD
     Indication: Relapsing-remitting multiple sclerosis
     Dosage: 0.5 MILLIGRAM
     Route: 048
     Dates: start: 20200204
  2. COMIRNATY [Concomitant]
     Active Substance: TOZINAMERAN
     Indication: COVID-19
     Dosage: 0.3 MILLILITER ONCE (1 TOTAL)
     Route: 030
     Dates: start: 20210601, end: 20210601
  3. COMIRNATY [Concomitant]
     Active Substance: TOZINAMERAN
     Dosage: 0.3 MILLILITER ONCE (1 TOTAL)
     Route: 030
     Dates: start: 20210714, end: 20210714
  4. COMIRNATY [Concomitant]
     Active Substance: TOZINAMERAN
     Dosage: 0.3 MILLILITER ONCE (1 TOTAL)
     Route: 030
     Dates: start: 20211220, end: 20211220

REACTIONS (1)
  - Hypertension [Not Recovered/Not Resolved]

NARRATIVE: CASE EVENT DATE: 20210226
